FAERS Safety Report 6332978-3 (Version None)
Quarter: 2009Q3

REPORT INFORMATION
  Report Type: 
  Country: None (occurrence: None)
  Receive Date: 20090828
  Receipt Date: 20090818
  Transmission Date: 20100115
  Serious: Yes (Other)
  Sender: FDA-Public Use
  Company Number: PHHY2009FI34874

PATIENT
  Sex: Male

DRUGS (4)
  1. LEPONEX [Suspect]
     Indication: SCHIZOPHRENIA
     Dosage: 750 MG PER DAY
     Dates: start: 20081201
  2. LEPONEX [Suspect]
     Dosage: 500 MG
  3. LEPONEX [Suspect]
     Dosage: 450 MG PER DAY
  4. RISPERDAL [Concomitant]
     Dosage: UNK

REACTIONS (10)
  - CHOKING [None]
  - DYSPNOEA [None]
  - EOSINOPHIL COUNT INCREASED [None]
  - FATIGUE [None]
  - INCREASED BRONCHIAL SECRETION [None]
  - MUSCLE SPASMS [None]
  - NASOPHARYNGITIS [None]
  - NEUTROPHIL COUNT INCREASED [None]
  - OROPHARYNGEAL PAIN [None]
  - WHITE BLOOD CELL COUNT INCREASED [None]
